FAERS Safety Report 10109279 (Version 2)
Quarter: 2014Q2

REPORT INFORMATION
  Report Type: Other
  Country: US (occurrence: US)
  Receive Date: 20140425
  Receipt Date: 20140611
  Transmission Date: 20141212
  Serious: Yes (Hospitalization, Other)
  Sender: FDA-Public Use
  Company Number: US-GSKPPD-2014GSK007431

PATIENT
  Sex: Female
  Weight: 74.91 kg

DRUGS (1)
  1. AVANDIA [Suspect]
     Indication: DIABETES MELLITUS
     Route: 048
     Dates: start: 200104, end: 20010727

REACTIONS (3)
  - Liver injury [None]
  - Mental disability [None]
  - Mental disability [None]
